FAERS Safety Report 5180002-0 (Version None)
Quarter: 2006Q4

REPORT INFORMATION
  Report Type: 
  Country: None (occurrence: None)
  Receive Date: 20061211
  Receipt Date: 20061204
  Transmission Date: 20070319
  Serious: No
  Sender: FDA-Public Use
  Company Number: E2090-00147-SPO-DE

PATIENT
  Age: 35 Year
  Sex: Female
  Weight: 74 kg

DRUGS (4)
  1. ZONEGRAN [Suspect]
     Indication: EPILEPSY
     Dosage: 500 MG, UNK; ORAL
     Route: 048
     Dates: start: 20060417
  2. LAMOTRIGINE [Concomitant]
  3. METOPROLOL SUCCINATE [Concomitant]
  4. MIDIP (FELODIPINE) [Concomitant]

REACTIONS (1)
  - ALOPECIA [None]
